FAERS Safety Report 16780447 (Version 1)
Quarter: 2019Q3

REPORT INFORMATION
  Report Type: Spontaneous
  Country: US (occurrence: US)
  Receive Date: 20190906
  Receipt Date: 20190906
  Transmission Date: 20191005
  Serious: Yes (Hospitalization, Other)
  Sender: FDA-Public Use
  Company Number: US-MYLANLABS-2019M1082845

PATIENT
  Age: 61 Year
  Sex: Male

DRUGS (1)
  1. METHOTREXATE. [Suspect]
     Active Substance: METHOTREXATE
     Indication: PSORIASIS
     Dosage: UNPRESCRIBED DOSES OF METHOTREXATE, UP TO 25 MG FIVE DAYS/WEEK
     Route: 065

REACTIONS (4)
  - Overdose [Recovering/Resolving]
  - Prescription drug used without a prescription [Recovering/Resolving]
  - Epidermal necrosis [Recovering/Resolving]
  - Toxicity to various agents [Recovering/Resolving]
